FAERS Safety Report 21659736 (Version 1)
Quarter: 2022Q4

REPORT INFORMATION
  Report Type: Report from Study
  Country: US (occurrence: US)
  Receive Date: 20221129
  Receipt Date: 20221129
  Transmission Date: 20230113
  Serious: No
  Sender: FDA-Public Use
  Company Number: US-ABBVIE-4176890

PATIENT
  Sex: Female

DRUGS (1)
  1. RINVOQ [Suspect]
     Active Substance: UPADACITINIB
     Indication: Ankylosing spondylitis
     Route: 048

REACTIONS (8)
  - Adverse drug reaction [Unknown]
  - Diarrhoea [Unknown]
  - Epistaxis [Unknown]
  - Headache [Unknown]
  - Abdominal pain upper [Unknown]
  - Flatulence [Unknown]
  - Influenza like illness [Unknown]
  - Sinusitis [Unknown]
